FAERS Safety Report 22223242 (Version 2)
Quarter: 2023Q2

REPORT INFORMATION
  Report Type: Spontaneous
  Country: GB (occurrence: GB)
  Receive Date: 20230418
  Receipt Date: 20230426
  Transmission Date: 20230722
  Serious: Yes (Hospitalization, Other)
  Sender: FDA-Public Use
  Company Number: None

PATIENT

DRUGS (10)
  1. IBUPROFEN [Suspect]
     Active Substance: IBUPROFEN
     Indication: Product used for unknown indication
     Dosage: UNK
     Route: 065
  2. ACETAMINOPHEN [Suspect]
     Active Substance: ACETAMINOPHEN
     Indication: Helicobacter gastritis
     Dosage: 1G TDS 5 DAYS A01BX TO STAR 12/11/22
     Route: 065
  3. THIAMINE [Suspect]
     Active Substance: THIAMINE
     Indication: Alcoholism
  4. FOLIC ACID [Suspect]
     Active Substance: FOLIC ACID
     Indication: Blood folate abnormal
     Dosage: 5MG TABLETS ONE TO BE TAKEN EACH DAY 28 TABLET
     Route: 065
  5. FIDAXOMICIN [Suspect]
     Active Substance: FIDAXOMICIN
     Indication: Product used for unknown indication
     Dosage: ON TTO 6/11/22:
     Route: 065
     Dates: start: 20221106
  6. AMOXICILLIN [Suspect]
     Active Substance: AMOXICILLIN
     Indication: Helicobacter infection
     Dosage: ON TTO 6/11/22
     Route: 065
     Dates: start: 20221112
  7. CARVEDILOL [Suspect]
     Active Substance: CARVEDILOL
     Indication: Cirrhosis alcoholic
     Dosage: 3.125MG TABLETS ONE TO BE TAKEN TWICE A DAY 56 TABLET
     Route: 065
     Dates: start: 20221010
  8. OMEPRAZOLE [Suspect]
     Active Substance: OMEPRAZOLE
     Indication: Product used for unknown indication
     Dosage: ON TTO 6/11/22
     Route: 065
  9. CLARITHROMYCIN [Suspect]
     Active Substance: CLARITHROMYCIN
     Indication: Product used for unknown indication
     Dosage: TWICE DAILY, ON TTO 6/11/22
  10. GUAR [Concomitant]
     Indication: Product used for unknown indication
     Dosage: 10 G DAILY 40 DAYS
     Route: 065

REACTIONS (1)
  - Duodenal ulcer [Recovered/Resolved]
